FAERS Safety Report 4429328-6 (Version None)
Quarter: 2004Q3

REPORT INFORMATION
  Report Type: 
  Country: None (occurrence: None)
  Receive Date: 20040816
  Receipt Date: 20040806
  Transmission Date: 20050211
  Serious: Yes (Other)
  Sender: FDA-Public Use
  Company Number: HQWYE138310AUG04

PATIENT
  Age: 35 Year
  Sex: Male
  Weight: 113.5 kg

DRUGS (1)
  1. PRIMATENE MIST [Suspect]
     Indication: ASTHMA
     Dosage: 1 DOSE, APPROXIMATELY EVERY 10 MINUTES, INHALATION
     Dates: start: 19940101

REACTIONS (2)
  - DRUG ABUSER [None]
  - OVERDOSE [None]
